FAERS Safety Report 18455321 (Version 1)
Quarter: 2020Q4

REPORT INFORMATION
  Report Type: Spontaneous
  Country: LU (occurrence: LU)
  Receive Date: 20201102
  Receipt Date: 20201102
  Transmission Date: 20210114
  Serious: Yes (Hospitalization, Other)
  Sender: FDA-Public Use
  Company Number: LU-FRESENIUS KABI-FK202011589

PATIENT
  Age: 18 Year
  Sex: Female

DRUGS (3)
  1. LIDOCAINE (MANUFACTURER UNKNOWN) [Suspect]
     Active Substance: LIDOCAINE
     Indication: NERVE BLOCK
     Dosage: 30 MG/3 ML
     Route: 019
  2. PIROXICAM. [Suspect]
     Active Substance: PIROXICAM
     Indication: NERVE BLOCK
     Dosage: 20 MG/3 ML
     Route: 019
  3. METAMIZOLE [Suspect]
     Active Substance: METAMIZOLE
     Indication: NERVE BLOCK
     Dosage: 500 MG/ML
     Route: 019

REACTIONS (2)
  - Wrong technique in product usage process [Recovered/Resolved]
  - Cerebellar syndrome [Recovered/Resolved]
